FAERS Safety Report 6332545-1 (Version None)
Quarter: 2009Q3

REPORT INFORMATION
  Report Type: 
  Country: None (occurrence: None)
  Receive Date: 20090828
  Receipt Date: 20090820
  Transmission Date: 20100115
  Serious: Yes (Hospitalization, Other)
  Sender: FDA-Public Use
  Company Number: US-ABBOTT-09P-163-0592822-00

PATIENT
  Sex: Female
  Weight: 60.836 kg

DRUGS (4)
  1. HUMIRA [Suspect]
     Indication: RHEUMATOID ARTHRITIS
     Route: 058
     Dates: start: 20040101, end: 20070101
  2. HUMIRA [Suspect]
     Route: 058
     Dates: start: 20070101, end: 20090801
  3. HUMIRA [Suspect]
     Dosage: SWITCHED TO PEN
     Route: 058
     Dates: start: 20090801
  4. DARVOCET [Concomitant]
     Indication: DRUG USE FOR UNKNOWN INDICATION
     Dates: start: 20090101

REACTIONS (6)
  - ABDOMINAL DISTENSION [None]
  - ACNE [None]
  - BREAKTHROUGH PAIN [None]
  - HAEMATEMESIS [None]
  - PEPTIC ULCER HAEMORRHAGE [None]
  - PRURITUS [None]
